FAERS Safety Report 5987376-9 (Version None)
Quarter: 2008Q4

REPORT INFORMATION
  Report Type: 
  Country: None (occurrence: None)
  Receive Date: 20081209
  Receipt Date: 20081202
  Transmission Date: 20090506
  Serious: Yes (Other)
  Sender: FDA-Public Use
  Company Number: PHHY2008US21627

PATIENT
  Sex: Male

DRUGS (2)
  1. LIORESAL [Suspect]
     Indication: MUSCLE SPASTICITY
     Dosage: 822 UG/DAILY
     Route: 037
  2. LIORESAL [Suspect]
     Dosage: 1200MCG/DAY
     Route: 037

REACTIONS (4)
  - DRUG INEFFECTIVE [None]
  - MUSCLE SPASTICITY [None]
  - SURGERY [None]
  - TREMOR [None]
